FAERS Safety Report 4847333-2 (Version None)
Quarter: 2005Q4

REPORT INFORMATION
  Report Type: 
  Country: None (occurrence: None)
  Receive Date: 20051207
  Receipt Date: 20051121
  Transmission Date: 20060501
  Serious: Yes (Other)
  Sender: FDA-Public Use
  Company Number: SG-BRISTOL-MYERS SQUIBB COMPANY-13192042

PATIENT
  Age: 51 Year
  Sex: Female

DRUGS (2)
  1. MAXIPIME [Suspect]
     Indication: PSEUDOMONAS INFECTION
     Route: 042
  2. METOCLOPRAMIDE [Suspect]
     Indication: VOMITING
     Route: 042

REACTIONS (4)
  - CONVULSION [None]
  - DYSTONIA [None]
  - LOSS OF CONSCIOUSNESS [None]
  - VOMITING [None]
